FAERS Safety Report 15015058 (Version 1)
Quarter: 2018Q2

REPORT INFORMATION
  Report Type: Spontaneous
  Country: US (occurrence: US)
  Receive Date: 20180530
  Receipt Date: 20180530
  Transmission Date: 20180711
  Serious: No
  Sender: FDA-Public Use
  Company Number: None

PATIENT
  Age: 43 Year
  Sex: Female
  Weight: 60.75 kg

DRUGS (2)
  1. VOLTAREN [Concomitant]
     Active Substance: DICLOFENAC SODIUM
  2. METAXALONE 800 MG TAB DR. [Suspect]
     Active Substance: METAXALONE
     Indication: MUSCLE TIGHTNESS
     Dosage: ?          QUANTITY:1 TABLET(S);?
     Route: 048
     Dates: start: 20180529, end: 20180529

REACTIONS (7)
  - Vomiting [None]
  - Palpitations [None]
  - Flatulence [None]
  - Abdominal pain upper [None]
  - Abdominal distension [None]
  - Pain [None]
  - Insomnia [None]

NARRATIVE: CASE EVENT DATE: 20180529
